FAERS Safety Report 4341501-4 (Version None)
Quarter: 2004Q2

REPORT INFORMATION
  Report Type: 
  Country: None (occurrence: None)
  Receive Date: 20040415
  Receipt Date: 20040401
  Transmission Date: 20050107
  Serious: Yes (Death, Other)
  Sender: FDA-Public Use
  Company Number: USA-2003-0010914

PATIENT
  Age: 44 Year
  Sex: Male
  Weight: 122 kg

DRUGS (10)
  1. OXYCONTIN [Suspect]
     Indication: PAIN
     Dosage: 320 MG, TID, ORAL
     Route: 048
     Dates: start: 19981028
  2. MORPHINE SULFATE [Suspect]
  3. OXYMORPHONE HYDROCHLORIDE [Suspect]
  4. ALPRAZOLAM [Suspect]
  5. PAROXETINE HCL [Suspect]
  6. CODEINE (CODEINE) [Suspect]
  7. COCAINE (COCAINE) [Suspect]
  8. DIOVAN ^CIBA-GEICY^ (VALSARTAN) [Concomitant]
  9. ZESTRIL [Concomitant]
  10. ZOCOR [Concomitant]

REACTIONS (14)
  - ACCIDENTAL OVERDOSE [None]
  - AGONAL RHYTHM [None]
  - APNOEA [None]
  - ATHEROSCLEROSIS [None]
  - COMA [None]
  - DRUG SCREEN POSITIVE [None]
  - DRUG TOXICITY [None]
  - MEDICATION ERROR [None]
  - MULTIPLE DRUG OVERDOSE [None]
  - POLYSUBSTANCE ABUSE [None]
  - PULSE ABSENT [None]
  - RESPIRATION ABNORMAL [None]
  - SOMNOLENCE [None]
  - VOMITING [None]
